FAERS Safety Report 5803869-9 (Version None)
Quarter: 2008Q3

REPORT INFORMATION
  Report Type: 
  Country: None (occurrence: None)
  Receive Date: 20080708
  Receipt Date: 20080626
  Transmission Date: 20090109
  Serious: Yes (Hospitalization, Other)
  Sender: FDA-Public Use
  Company Number: US-PFIZER INC-2008045355

PATIENT
  Sex: Female
  Weight: 72.7 kg

DRUGS (13)
  1. CHANTIX [Suspect]
     Indication: SMOKING CESSATION THERAPY
  2. ACETYLSALICYLIC ACID SRT [Concomitant]
  3. METHADON HCL TAB [Concomitant]
     Indication: BACK DISORDER
  4. BACLOFEN [Concomitant]
  5. GLIPIZIDE [Concomitant]
  6. METFORMIN HCL [Concomitant]
  7. METOPROLOL SUCCINATE [Concomitant]
  8. CYMBALTA [Concomitant]
  9. NEURONTIN [Concomitant]
  10. ALTACE [Concomitant]
  11. AMBIEN [Concomitant]
  12. TRAZODONE HCL [Concomitant]
  13. SIMVASTATIN [Concomitant]

REACTIONS (7)
  - AMNESIA [None]
  - ATRIOVENTRICULAR BLOCK [None]
  - CARDIAC DISORDER [None]
  - CHEST DISCOMFORT [None]
  - DYSPNOEA [None]
  - HEAD INJURY [None]
  - THROMBOSIS [None]
